FAERS Safety Report 23932044 (Version 15)
Quarter: 2025Q4

REPORT INFORMATION
  Report Type: Report from Study
  Country: CN (occurrence: CN)
  Receive Date: 20240603
  Receipt Date: 20251211
  Transmission Date: 20260119
  Serious: Yes (Life-Threatening, Other)
  Sender: ROCHE
  Company Number: CN-ROCHE-3486477

PATIENT
  Age: 60 Year
  Sex: Female
  Weight: 62 kg

DRUGS (201)
  1. POLATUZUMAB VEDOTIN [Suspect]
     Active Substance: POLATUZUMAB VEDOTIN
     Indication: Diffuse large B-cell lymphoma
     Route: 041
     Dates: start: 20230824, end: 20230824
  2. POLATUZUMAB VEDOTIN [Suspect]
     Active Substance: POLATUZUMAB VEDOTIN
     Route: 041
     Dates: start: 20230914, end: 20230914
  3. POLATUZUMAB VEDOTIN [Suspect]
     Active Substance: POLATUZUMAB VEDOTIN
     Route: 041
     Dates: start: 20231017, end: 20231017
  4. POLATUZUMAB VEDOTIN [Suspect]
     Active Substance: POLATUZUMAB VEDOTIN
     Route: 041
     Dates: start: 20231112, end: 20231112
  5. POLATUZUMAB VEDOTIN [Suspect]
     Active Substance: POLATUZUMAB VEDOTIN
     Route: 041
     Dates: start: 20231227, end: 20231227
  6. RITUXIMAB [Suspect]
     Active Substance: RITUXIMAB
     Indication: Diffuse large B-cell lymphoma
     Route: 041
  7. RITUXIMAB [Suspect]
     Active Substance: RITUXIMAB
     Route: 041
     Dates: start: 20230823, end: 20230823
  8. RITUXIMAB [Suspect]
     Active Substance: RITUXIMAB
     Route: 041
     Dates: start: 20230913, end: 20230913
  9. RITUXIMAB [Suspect]
     Active Substance: RITUXIMAB
     Route: 041
     Dates: start: 20231016, end: 20231016
  10. RITUXIMAB [Suspect]
     Active Substance: RITUXIMAB
     Route: 041
     Dates: start: 20231111, end: 20231111
  11. RITUXIMAB [Suspect]
     Active Substance: RITUXIMAB
     Route: 041
  12. RITUXIMAB [Suspect]
     Active Substance: RITUXIMAB
     Route: 041
  13. CYCLOPHOSPHAMIDE [Suspect]
     Active Substance: CYCLOPHOSPHAMIDE
     Indication: Diffuse large B-cell lymphoma
     Route: 041
     Dates: start: 20230824, end: 20230824
  14. CYCLOPHOSPHAMIDE [Suspect]
     Active Substance: CYCLOPHOSPHAMIDE
     Route: 041
     Dates: start: 20230914, end: 20230914
  15. CYCLOPHOSPHAMIDE [Suspect]
     Active Substance: CYCLOPHOSPHAMIDE
     Route: 041
     Dates: start: 20231016, end: 20231016
  16. CYCLOPHOSPHAMIDE [Suspect]
     Active Substance: CYCLOPHOSPHAMIDE
     Route: 041
     Dates: start: 20231112, end: 20231112
  17. CYCLOPHOSPHAMIDE [Suspect]
     Active Substance: CYCLOPHOSPHAMIDE
     Route: 041
     Dates: start: 20231228, end: 20231228
  18. DOXORUBICIN HYDROCHLORIDE [Suspect]
     Active Substance: DOXORUBICIN HYDROCHLORIDE
     Indication: Diffuse large B-cell lymphoma
     Route: 041
     Dates: start: 20230824, end: 20230824
  19. DOXORUBICIN HYDROCHLORIDE [Suspect]
     Active Substance: DOXORUBICIN HYDROCHLORIDE
     Route: 041
     Dates: start: 20230914, end: 20230914
  20. DOXORUBICIN HYDROCHLORIDE [Suspect]
     Active Substance: DOXORUBICIN HYDROCHLORIDE
     Route: 041
     Dates: start: 20231016, end: 20231016
  21. DOXORUBICIN HYDROCHLORIDE [Suspect]
     Active Substance: DOXORUBICIN HYDROCHLORIDE
     Route: 041
     Dates: start: 20231112, end: 20231112
  22. DOXORUBICIN HYDROCHLORIDE [Suspect]
     Active Substance: DOXORUBICIN HYDROCHLORIDE
     Route: 041
     Dates: start: 20231228, end: 20231228
  23. DECITABINE [Suspect]
     Active Substance: DECITABINE
     Indication: Diffuse large B-cell lymphoma
     Route: 041
     Dates: end: 20230917
  24. DECITABINE [Suspect]
     Active Substance: DECITABINE
     Dosage: THERAPY START DATE 13-SEP-2023
     Route: 041
     Dates: end: 20230917
  25. DECITABINE [Suspect]
     Active Substance: DECITABINE
     Route: 041
     Dates: start: 20230914, end: 20230918
  26. DECITABINE [Suspect]
     Active Substance: DECITABINE
     Route: 041
     Dates: start: 20230914, end: 20230918
  27. DECITABINE [Suspect]
     Active Substance: DECITABINE
     Route: 041
     Dates: start: 20231013, end: 20231015
  28. DECITABINE [Suspect]
     Active Substance: DECITABINE
     Route: 041
     Dates: start: 20231013, end: 20231013
  29. DECITABINE [Suspect]
     Active Substance: DECITABINE
     Route: 041
     Dates: start: 20231013, end: 20231015
  30. DECITABINE [Suspect]
     Active Substance: DECITABINE
     Route: 041
     Dates: start: 20231014, end: 20231016
  31. DECITABINE [Suspect]
     Active Substance: DECITABINE
     Route: 041
     Dates: start: 20231108, end: 20231108
  32. DECITABINE [Suspect]
     Active Substance: DECITABINE
     Route: 041
     Dates: start: 20231108, end: 20231110
  33. DECITABINE [Suspect]
     Active Substance: DECITABINE
     Route: 041
     Dates: start: 20231109, end: 20231111
  34. DECITABINE [Suspect]
     Active Substance: DECITABINE
     Route: 041
     Dates: start: 20231109, end: 20231111
  35. DECITABINE [Suspect]
     Active Substance: DECITABINE
     Route: 041
     Dates: start: 20231224, end: 20231226
  36. PREDNISONE [Suspect]
     Active Substance: PREDNISONE
     Indication: Diffuse large B-cell lymphoma
     Route: 048
     Dates: start: 20230824, end: 20230828
  37. PREDNISONE [Suspect]
     Active Substance: PREDNISONE
     Route: 048
     Dates: start: 20230914, end: 20230918
  38. PREDNISONE [Suspect]
     Active Substance: PREDNISONE
     Route: 048
     Dates: start: 20231206, end: 20231210
  39. PREDNISONE [Suspect]
     Active Substance: PREDNISONE
     Route: 048
     Dates: start: 20231016, end: 20231020
  40. PREDNISONE [Suspect]
     Active Substance: PREDNISONE
     Route: 048
     Dates: start: 20231112, end: 20231116
  41. PREDNISONE [Suspect]
     Active Substance: PREDNISONE
     Route: 048
     Dates: start: 20231228, end: 20240101
  42. PREDNISOLONE ACETATE [Suspect]
     Active Substance: PREDNISOLONE ACETATE
     Indication: Product used for unknown indication
  43. METHYLPREDNISOLONE SODIUM SUCCINATE [Suspect]
     Active Substance: METHYLPREDNISOLONE SODIUM SUCCINATE
     Indication: Product used for unknown indication
     Route: 041
  44. METHYLPREDNISOLONE SODIUM SUCCINATE [Suspect]
     Active Substance: METHYLPREDNISOLONE SODIUM SUCCINATE
     Route: 041
  45. METHYLPREDNISOLONE SODIUM SUCCINATE [Suspect]
     Active Substance: METHYLPREDNISOLONE SODIUM SUCCINATE
     Route: 041
     Dates: start: 20231014, end: 20231017
  46. METHYLPREDNISOLONE SODIUM SUCCINATE [Suspect]
     Active Substance: METHYLPREDNISOLONE SODIUM SUCCINATE
     Route: 041
     Dates: start: 20231109, end: 20231112
  47. GABEXATE MESYLATE [Suspect]
     Active Substance: GABEXATE MESYLATE
     Indication: Product used for unknown indication
     Dosage: DOSE 3 BOTTLE
  48. GABEXATE MESYLATE [Suspect]
     Active Substance: GABEXATE MESYLATE
     Dosage: DOSE 3 BRANCH
  49. GABEXATE MESYLATE [Suspect]
     Active Substance: GABEXATE MESYLATE
  50. CEFACLOR [Suspect]
     Active Substance: CEFACLOR
     Indication: Product used for unknown indication
  51. CEFOTAXIME [Suspect]
     Active Substance: CEFOTAXIME SODIUM
     Indication: Product used for unknown indication
  52. IMIPENEM AND CILASTATIN SODIUM [Suspect]
     Active Substance: CILASTATIN SODIUM\IMIPENEM
     Indication: Product used for unknown indication
  53. FLURBIPROFEN AXETIL [Concomitant]
     Active Substance: FLURBIPROFEN AXETIL
     Route: 041
     Dates: start: 20230811, end: 20230811
  54. FLURBIPROFEN AXETIL [Concomitant]
     Active Substance: FLURBIPROFEN AXETIL
     Dosage: 2 OTHER
  55. URSODIOL [Concomitant]
     Active Substance: URSODIOL
     Dosage: 1 CAPSULE
     Route: 048
     Dates: start: 20231010, end: 20241010
  56. URSODIOL [Concomitant]
     Active Substance: URSODIOL
     Route: 048
     Dates: start: 20231118, end: 20231118
  57. Live Combined Biffdobacterium,Lactobacillus And Enterococcus [Concomitant]
     Route: 048
     Dates: start: 20230909, end: 20230926
  58. Live Combined Biffdobacterium,Lactobacillus And Enterococcus [Concomitant]
     Route: 048
     Dates: start: 20230910, end: 20230926
  59. Acetylcysteine tablet [Concomitant]
     Route: 048
     Dates: start: 20230831, end: 20230912
  60. Acetylcysteine tablet [Concomitant]
     Dosage: 1 TABLET
     Route: 048
     Dates: start: 20230930, end: 20231015
  61. Acetylcysteine tablet [Concomitant]
     Dosage: 1 TABLET
     Route: 048
     Dates: start: 20231013, end: 20231018
  62. ENTECAVIR [Concomitant]
     Active Substance: ENTECAVIR
     Route: 048
     Dates: start: 20230831, end: 20230920
  63. ENTECAVIR [Concomitant]
     Active Substance: ENTECAVIR
     Dosage: 1 TABLET
     Route: 048
     Dates: start: 20230929, end: 20231122
  64. ENTECAVIR [Concomitant]
     Active Substance: ENTECAVIR
     Route: 048
     Dates: start: 20231013, end: 20231013
  65. ENTECAVIR [Concomitant]
     Active Substance: ENTECAVIR
     Route: 048
     Dates: start: 20231108, end: 20231108
  66. ENTECAVIR [Concomitant]
     Active Substance: ENTECAVIR
     Route: 048
     Dates: start: 20231122
  67. ONDANSETRON HYDROCHLORIDE [Concomitant]
     Active Substance: ONDANSETRON HYDROCHLORIDE
     Dosage: ANTIEMETIC
     Route: 042
     Dates: start: 20230913, end: 20230918
  68. ONDANSETRON HYDROCHLORIDE [Concomitant]
     Active Substance: ONDANSETRON HYDROCHLORIDE
     Route: 042
     Dates: start: 20231121, end: 20231207
  69. SODIUM BICARBONATE [Concomitant]
     Active Substance: SODIUM BICARBONATE
     Route: 041
     Dates: start: 20230914, end: 20230917
  70. ALBUMIN HUMAN [Concomitant]
     Active Substance: ALBUMIN HUMAN
     Dosage: ANTIEMETIC
     Route: 041
     Dates: start: 20230830, end: 20230920
  71. ALBUMIN HUMAN [Concomitant]
     Active Substance: ALBUMIN HUMAN
     Dosage: ANTIEMETIC
     Route: 041
     Dates: start: 20230831, end: 20230919
  72. Sodium Lactate Ringer [Concomitant]
     Dosage: REGULATE BODY FLUIDS, ELECTROLYTES, AND ACID-BASE?BALANCE
     Route: 041
     Dates: start: 20230913, end: 20230913
  73. Sodium Lactate Ringer [Concomitant]
     Dosage: REGULATE BODY FLUIDS, ELECTROLYTES, AND ACID-BASE?BALANCE
     Route: 041
     Dates: start: 20230914, end: 20230919
  74. LINEZOLID [Concomitant]
     Active Substance: LINEZOLID
     Route: 048
     Dates: start: 20230831, end: 20230915
  75. MEROPENEM [Concomitant]
     Active Substance: MEROPENEM
     Route: 041
     Dates: start: 20230830, end: 20230917
  76. MEROPENEM [Concomitant]
     Active Substance: MEROPENEM
     Route: 041
     Dates: start: 20231011, end: 20231023
  77. LECITHIN [Concomitant]
     Active Substance: LECITHIN
     Dosage: LIVER PROTECTION?2 OTHER
     Dates: start: 20230902, end: 20230920
  78. LECITHIN [Concomitant]
     Active Substance: LECITHIN
     Route: 041
     Dates: start: 20230903, end: 20230919
  79. GLUTATHIONE [Concomitant]
     Active Substance: GLUTATHIONE
     Dosage: LIVER PROTECTION
     Route: 041
     Dates: start: 20230902, end: 20230920
  80. GLUTATHIONE [Concomitant]
     Active Substance: GLUTATHIONE
     Route: 041
     Dates: start: 20230903, end: 20230919
  81. GLUTATHIONE [Concomitant]
     Active Substance: GLUTATHIONE
     Route: 041
     Dates: start: 20231003, end: 20231003
  82. POTASSIUM CHLORIDE [Concomitant]
     Active Substance: POTASSIUM CHLORIDE
     Route: 048
     Dates: start: 20230914, end: 20230914
  83. POTASSIUM CHLORIDE [Concomitant]
     Active Substance: POTASSIUM CHLORIDE
     Route: 048
     Dates: start: 20230915, end: 20231001
  84. POTASSIUM CHLORIDE [Concomitant]
     Active Substance: POTASSIUM CHLORIDE
     Route: 048
     Dates: start: 20230920, end: 20230920
  85. POTASSIUM CHLORIDE [Concomitant]
     Active Substance: POTASSIUM CHLORIDE
     Route: 048
     Dates: start: 20231002, end: 20231010
  86. POTASSIUM CHLORIDE [Concomitant]
     Active Substance: POTASSIUM CHLORIDE
     Dosage: RAISE POTASSIUM
     Route: 048
     Dates: start: 20231003, end: 20231003
  87. POTASSIUM CHLORIDE [Concomitant]
     Active Substance: POTASSIUM CHLORIDE
     Route: 048
     Dates: start: 20231110, end: 20231207
  88. POTASSIUM CHLORIDE [Concomitant]
     Active Substance: POTASSIUM CHLORIDE
     Route: 048
     Dates: start: 20231125, end: 20231128
  89. POTASSIUM CHLORIDE [Concomitant]
     Active Substance: POTASSIUM CHLORIDE
     Route: 048
     Dates: start: 20231226, end: 20231228
  90. POTASSIUM CHLORIDE [Concomitant]
     Active Substance: POTASSIUM CHLORIDE
     Route: 041
     Dates: start: 20231011, end: 20231013
  91. Compound Sulfamethoxazole tablet [Concomitant]
     Dosage: MEDICATION DOSE 1 UNKNOWN
     Route: 048
     Dates: start: 20230914, end: 20231108
  92. Compound Sulfamethoxazole tablet [Concomitant]
     Dosage: MEDICATION DOSE 2 TABLET
     Route: 048
     Dates: start: 20231108, end: 20231207
  93. VALACYCLOVIR HYDROCHLORIDE [Concomitant]
     Active Substance: VALACYCLOVIR HYDROCHLORIDE
     Route: 048
     Dates: start: 20230914, end: 20230914
  94. VALACYCLOVIR HYDROCHLORIDE [Concomitant]
     Active Substance: VALACYCLOVIR HYDROCHLORIDE
     Dosage: ANTIVIRAL
     Route: 048
     Dates: start: 20230915, end: 20230918
  95. VALACYCLOVIR HYDROCHLORIDE [Concomitant]
     Active Substance: VALACYCLOVIR HYDROCHLORIDE
     Route: 048
     Dates: start: 20230916, end: 20230919
  96. VALACYCLOVIR HYDROCHLORIDE [Concomitant]
     Active Substance: VALACYCLOVIR HYDROCHLORIDE
     Dosage: ANTIVIRAL? 2 TABLET
     Route: 048
     Dates: start: 20230918, end: 20230923
  97. VALACYCLOVIR HYDROCHLORIDE [Concomitant]
     Active Substance: VALACYCLOVIR HYDROCHLORIDE
     Route: 048
     Dates: start: 20230920, end: 20230920
  98. VALACYCLOVIR HYDROCHLORIDE [Concomitant]
     Active Substance: VALACYCLOVIR HYDROCHLORIDE
     Dosage: MEDICATION DOSE 1 TABLET?MEDICATION FREQUENCY ONCE
     Route: 048
  99. VALACYCLOVIR HYDROCHLORIDE [Concomitant]
     Active Substance: VALACYCLOVIR HYDROCHLORIDE
     Route: 048
     Dates: start: 20231116, end: 20231207
  100. ALPRAZOLAM [Concomitant]
     Active Substance: ALPRAZOLAM
     Dosage: EVERY NIGHT - QN
     Route: 048
     Dates: start: 20230829, end: 20230914
  101. ALPRAZOLAM [Concomitant]
     Active Substance: ALPRAZOLAM
     Route: 048
     Dates: start: 20230831, end: 20230920
  102. ALPRAZOLAM [Concomitant]
     Active Substance: ALPRAZOLAM
     Dosage: 1 TABLET
     Route: 048
     Dates: start: 20230928, end: 20231011
  103. ALPRAZOLAM [Concomitant]
     Active Substance: ALPRAZOLAM
     Route: 048
     Dates: start: 20231004, end: 20231010
  104. ALPRAZOLAM [Concomitant]
     Active Substance: ALPRAZOLAM
     Dosage: QN
     Route: 048
     Dates: start: 20231005, end: 20231010
  105. ALPRAZOLAM [Concomitant]
     Active Substance: ALPRAZOLAM
     Dosage: QN
     Route: 048
     Dates: start: 20231012, end: 20231023
  106. ALPRAZOLAM [Concomitant]
     Active Substance: ALPRAZOLAM
     Dosage: QN
     Route: 048
  107. ALPRAZOLAM [Concomitant]
     Active Substance: ALPRAZOLAM
     Route: 048
     Dates: start: 20231108, end: 20231207
  108. ALPRAZOLAM [Concomitant]
     Active Substance: ALPRAZOLAM
     Route: 048
     Dates: start: 20231224, end: 20231228
  109. CEFACLOR [Concomitant]
     Active Substance: CEFACLOR
     Dosage: ANTI-INFECTION
     Route: 048
     Dates: start: 20230823, end: 20230920
  110. CEFACLOR [Concomitant]
     Active Substance: CEFACLOR
     Route: 048
     Dates: start: 20230918, end: 20230919
  111. CEFACLOR [Concomitant]
     Active Substance: CEFACLOR
     Route: 048
     Dates: start: 20231013, end: 20231015
  112. CEFACLOR [Concomitant]
     Active Substance: CEFACLOR
     Route: 048
     Dates: start: 20231023
  113. OMEPRAZOLE SODIUM [Concomitant]
     Active Substance: OMEPRAZOLE SODIUM
     Dosage: PROTECTING THE STOMACH
     Route: 042
     Dates: start: 20230918, end: 20230919
  114. OMEPRAZOLE SODIUM [Concomitant]
     Active Substance: OMEPRAZOLE SODIUM
     Dosage: OTHER MEDICATION FREQUENCY IS ST
     Route: 042
  115. OMEPRAZOLE SODIUM [Concomitant]
     Active Substance: OMEPRAZOLE SODIUM
     Dosage: OTHER MEDICATION FREQUENCY IS ST
     Route: 042
     Dates: start: 20231011, end: 20231013
  116. OMEPRAZOLE SODIUM [Concomitant]
     Active Substance: OMEPRAZOLE SODIUM
     Dosage: OTHER MEDICATION FREQUENCY IS ST
     Route: 042
     Dates: start: 20231230, end: 20240107
  117. PANTOPRAZOLE SODIUM [Concomitant]
     Active Substance: PANTOPRAZOLE SODIUM
     Dosage: PROTECTING THE STOMACH
     Route: 048
     Dates: start: 20230918, end: 20230918
  118. INSULIN HUMAN [Concomitant]
     Active Substance: INSULIN HUMAN
     Dosage: MEDICATION DOSE 2IU IU
     Route: 058
     Dates: start: 20230812
  119. INSULIN HUMAN [Concomitant]
     Active Substance: INSULIN HUMAN
     Dosage: MEDICATION DOSE 2IU IU
     Route: 058
     Dates: start: 20231011, end: 20231013
  120. INSULIN HUMAN [Concomitant]
     Active Substance: INSULIN HUMAN
     Dosage: MEDICATION DOSE 2IU IU
     Route: 058
     Dates: start: 20231230, end: 20240107
  121. VITAMIN B6 [Concomitant]
     Active Substance: PYRIDOXINE HYDROCHLORIDE
     Dosage: ANTIEMETIC
     Route: 041
     Dates: start: 20231014, end: 20231018
  122. VITAMIN B6 [Concomitant]
     Active Substance: PYRIDOXINE HYDROCHLORIDE
     Route: 042
     Dates: start: 20231205, end: 20231207
  123. VITAMIN B6 [Concomitant]
     Active Substance: PYRIDOXINE HYDROCHLORIDE
     Route: 048
     Dates: start: 20231225, end: 20231225
  124. VITAMIN B6 [Concomitant]
     Active Substance: PYRIDOXINE HYDROCHLORIDE
     Route: 048
     Dates: start: 20240118, end: 20240118
  125. Metronidazole sodium chloride [Concomitant]
     Route: 041
     Dates: start: 20231007, end: 20231009
  126. Metronidazole sodium chloride [Concomitant]
     Route: 041
     Dates: start: 20231008, end: 20231009
  127. Metronidazole sodium chloride [Concomitant]
     Route: 041
     Dates: start: 20231014, end: 20231023
  128. PIPERACILLIN AND TAZOBACTAM [Concomitant]
     Active Substance: PIPERACILLIN SODIUM\TAZOBACTAM SODIUM
     Route: 041
     Dates: start: 20231107, end: 20231207
  129. AMBROXOL HYDROCHLORIDE [Concomitant]
     Active Substance: AMBROXOL HYDROCHLORIDE
     Route: 041
     Dates: start: 20231108, end: 20231204
  130. Human erythropoietin injection [Concomitant]
     Route: 058
     Dates: start: 20231120, end: 20231207
  131. Human erythropoietin injection [Concomitant]
     Route: 058
     Dates: start: 20231230, end: 20240107
  132. CEFTAZIDIME [Concomitant]
     Active Substance: CEFTAZIDIME
     Route: 041
     Dates: start: 20231002, end: 20231003
  133. Recombinant thrombopoietin [Concomitant]
     Route: 058
     Dates: start: 20231003, end: 20231008
  134. IMIPENEM AND CILASTATIN SODIUM [Concomitant]
     Active Substance: CILASTATIN SODIUM\IMIPENEM
     Route: 041
     Dates: start: 20231002, end: 20231003
  135. IMIPENEM AND CILASTATIN SODIUM [Concomitant]
     Active Substance: CILASTATIN SODIUM\IMIPENEM
     Route: 041
     Dates: start: 20231231, end: 20240107
  136. vancocin vial [Concomitant]
     Route: 041
     Dates: start: 20231002, end: 20231009
  137. vancocin vial [Concomitant]
     Route: 041
     Dates: start: 20231003, end: 20231009
  138. FLUCONAZOLE [Concomitant]
     Active Substance: FLUCONAZOLE
     Route: 041
     Dates: start: 20231005, end: 20231009
  139. FLUCONAZOLE [Concomitant]
     Active Substance: FLUCONAZOLE
     Route: 041
     Dates: start: 20231014, end: 20231023
  140. INDOMETHACIN [Concomitant]
     Active Substance: INDOMETHACIN
     Dosage: MEDICATION DOSE 0.5 OTHER?OTHER DOSE UNIT  HALF OF PELLET?MEDICATION FREQUENCY OTHER
     Dates: start: 20231013, end: 20231014
  141. Palonosetron hydrochloride capsule [Concomitant]
     Dosage: 1 CAPSULE
     Route: 048
     Dates: start: 20231013, end: 20231013
  142. Palonosetron hydrochloride capsule [Concomitant]
     Dosage: 3 CAPSULE
     Route: 048
     Dates: start: 20231108, end: 20231108
  143. DEXAMETHASONE SODIUM PHOSPHATE [Concomitant]
     Active Substance: DEXAMETHASONE SODIUM PHOSPHATE
     Indication: Product used for unknown indication
     Dosage: ONCE
     Route: 042
  144. DEXAMETHASONE SODIUM PHOSPHATE [Concomitant]
     Active Substance: DEXAMETHASONE SODIUM PHOSPHATE
     Dosage: ONCE
     Route: 042
     Dates: start: 20231121, end: 20231121
  145. DEXAMETHASONE SODIUM PHOSPHATE [Concomitant]
     Active Substance: DEXAMETHASONE SODIUM PHOSPHATE
     Dosage: THERAPY START DATE 14-OCT-2023?ONCE
     Route: 042
     Dates: end: 20231014
  146. Reduced glutathione for injection [Concomitant]
     Route: 041
     Dates: start: 20231002, end: 20231009
  147. Reduced glutathione for injection [Concomitant]
     Route: 041
     Dates: start: 20231120, end: 20231120
  148. Reduced glutathione for injection [Concomitant]
     Route: 041
     Dates: start: 20231227, end: 20231229
  149. Intravenous injection of human immunoglobulin [Concomitant]
     Route: 041
     Dates: start: 20231003, end: 20231009
  150. Intravenous injection of human immunoglobulin [Concomitant]
     Route: 041
     Dates: start: 20231225, end: 20231229
  151. Magnesium Isoglycyrrhizinate Injection [Concomitant]
     Route: 041
     Dates: start: 20231005, end: 20231023
  152. Magnesium Isoglycyrrhizinate Injection [Concomitant]
     Route: 041
     Dates: start: 20231227, end: 20240107
  153. OCTREOTIDE ACETATE [Concomitant]
     Active Substance: OCTREOTIDE ACETATE
     Route: 058
     Dates: start: 20231010, end: 20231010
  154. VANCOMYCIN [Concomitant]
     Active Substance: VANCOMYCIN
     Dates: start: 20231002, end: 20231009
  155. VANCOMYCIN [Concomitant]
     Active Substance: VANCOMYCIN
     Route: 041
     Dates: start: 20231014, end: 20231023
  156. VANCOMYCIN [Concomitant]
     Active Substance: VANCOMYCIN
     Route: 041
     Dates: start: 20231108, end: 20231207
  157. VANCOMYCIN [Concomitant]
     Active Substance: VANCOMYCIN
     Route: 041
     Dates: start: 20231227, end: 20231228
  158. FENTANYL [Concomitant]
     Active Substance: FENTANYL
     Dosage: MEDICATION ROUTE EXTERNAL USE
     Dates: start: 20231008, end: 20231008
  159. Pethidine Hydrochloride Injection [Concomitant]
     Route: 030
     Dates: start: 20231010, end: 20231010
  160. OMEPRAZOLE [Concomitant]
     Active Substance: OMEPRAZOLE
     Indication: Product used for unknown indication
     Route: 048
     Dates: start: 20231108, end: 20231112
  161. OMEPRAZOLE [Concomitant]
     Active Substance: OMEPRAZOLE
     Route: 048
     Dates: start: 20231205, end: 20231206
  162. OMEPRAZOLE [Concomitant]
     Active Substance: OMEPRAZOLE
     Route: 048
     Dates: start: 20231224, end: 20231229
  163. OMEPRAZOLE [Concomitant]
     Active Substance: OMEPRAZOLE
     Route: 048
     Dates: start: 20230823, end: 20230830
  164. OMEPRAZOLE [Concomitant]
     Active Substance: OMEPRAZOLE
     Route: 048
     Dates: start: 20231014, end: 20231017
  165. OMEPRAZOLE [Concomitant]
     Active Substance: OMEPRAZOLE
     Route: 048
     Dates: start: 20231207
  166. ALBUMIN HUMAN [Concomitant]
     Active Substance: ALBUMIN HUMAN
     Route: 041
     Dates: start: 20231011, end: 20231011
  167. ALBUMIN HUMAN [Concomitant]
     Active Substance: ALBUMIN HUMAN
     Route: 041
     Dates: start: 20231109, end: 20231117
  168. ALBUMIN HUMAN [Concomitant]
     Active Substance: ALBUMIN HUMAN
     Route: 041
     Dates: start: 20231206, end: 20231207
  169. ALBUMIN HUMAN [Concomitant]
     Active Substance: ALBUMIN HUMAN
     Route: 041
     Dates: start: 20231228, end: 20231229
  170. ALBUMIN HUMAN [Concomitant]
     Active Substance: ALBUMIN HUMAN
     Route: 058
     Dates: start: 20231230, end: 20240107
  171. ALBUMIN HUMAN [Concomitant]
     Active Substance: ALBUMIN HUMAN
     Route: 041
     Dates: start: 20231231, end: 20240107
  172. TORSEMIDE [Concomitant]
     Active Substance: TORSEMIDE
     Indication: Product used for unknown indication
     Route: 042
     Dates: start: 20231109, end: 20231207
  173. TORSEMIDE [Concomitant]
     Active Substance: TORSEMIDE
     Route: 042
     Dates: start: 20231230, end: 20240107
  174. TORSEMIDE [Concomitant]
     Active Substance: TORSEMIDE
     Dosage: THERAPY START DATE 08-NOV-2023
     Route: 042
     Dates: end: 20231207
  175. ENOXAPARIN SODIUM [Concomitant]
     Active Substance: ENOXAPARIN SODIUM
     Dosage: MEDICATION DOSE UK OTHER?OTHER DOSE UNIT IS AXAIU
     Route: 058
     Dates: start: 20231109, end: 20231207
  176. GRANULOCYTE COLONY-STIMULATING FACTOR NOS [Concomitant]
     Active Substance: GRANULOCYTE COLONY-STIMULATING FACTOR NOS
     Route: 058
     Dates: start: 20231002, end: 20231010
  177. GRANULOCYTE COLONY-STIMULATING FACTOR NOS [Concomitant]
     Active Substance: GRANULOCYTE COLONY-STIMULATING FACTOR NOS
     Route: 041
     Dates: start: 20231128, end: 20231130
  178. GRANULOCYTE COLONY-STIMULATING FACTOR NOS [Concomitant]
     Active Substance: GRANULOCYTE COLONY-STIMULATING FACTOR NOS
     Route: 041
     Dates: start: 20231203, end: 20231204
  179. PROMETHAZINE HYDROCHLORIDE [Concomitant]
     Active Substance: PROMETHAZINE HYDROCHLORIDE
     Route: 042
     Dates: start: 20221204, end: 20231207
  180. PROMETHAZINE HYDROCHLORIDE [Concomitant]
     Active Substance: PROMETHAZINE HYDROCHLORIDE
     Route: 042
     Dates: start: 20231109, end: 20231113
  181. PROMETHAZINE HYDROCHLORIDE [Concomitant]
     Active Substance: PROMETHAZINE HYDROCHLORIDE
     Route: 042
     Dates: start: 20231225, end: 20231229
  182. Prednisone Acetate tablet [Concomitant]
     Route: 048
     Dates: start: 20231108, end: 20231108
  183. LEUCOGEN [Concomitant]
     Active Substance: LEUCOGEN
     Route: 048
     Dates: start: 20230823, end: 20230908
  184. LEUCOGEN [Concomitant]
     Active Substance: LEUCOGEN
     Route: 048
     Dates: start: 20231118, end: 20231118
  185. LEUCOGEN [Concomitant]
     Active Substance: LEUCOGEN
     Route: 048
     Dates: start: 20231023, end: 20231023
  186. CEFTRIAXONE SODIUM [Concomitant]
     Active Substance: CEFTRIAXONE SODIUM
     Route: 041
     Dates: start: 20231223, end: 20231229
  187. CASPOFUNGIN ACETATE [Concomitant]
     Active Substance: CASPOFUNGIN ACETATE
     Route: 041
     Dates: start: 20231225, end: 20231229
  188. FUROSEMIDE [Concomitant]
     Active Substance: FUROSEMIDE
     Route: 042
     Dates: start: 20231226, end: 20231229
  189. ACYCLOVIR SODIUM [Concomitant]
     Active Substance: ACYCLOVIR SODIUM
     Route: 048
     Dates: start: 20231227, end: 20231228
  190. Omadacycline Tosilate for injection [Concomitant]
     Route: 041
     Dates: start: 20230811, end: 20230811
  191. ADEMETIONINE 1,4-BUTANEDISULFONATE for injection [Concomitant]
     Route: 041
     Dates: start: 20230903, end: 20230903
  192. ADEMETIONINE 1,4-BUTANEDISULFONATE for injection [Concomitant]
     Route: 041
     Dates: start: 20231108, end: 20231114
  193. ADEMETIONINE 1,4-BUTANEDISULFONATE for injection [Concomitant]
     Route: 041
     Dates: start: 20231227, end: 20231229
  194. POTASSIUM CHLORIDE [Concomitant]
     Active Substance: POTASSIUM CHLORIDE
     Route: 041
     Dates: start: 20230811, end: 20230811
  195. vitamin k1 injection [Concomitant]
     Dates: start: 20230811, end: 20230811
  196. TRANEXAMIC ACID [Concomitant]
     Active Substance: TRANEXAMIC ACID
  197. IOVERSOL [Concomitant]
     Active Substance: IOVERSOL
     Dates: start: 20231009, end: 20231010
  198. Montmorillonite powder [Concomitant]
  199. CALAMINE LOTION [Concomitant]
     Active Substance: CALAMINE LOTION
  200. BUFFERIN COLD [Concomitant]
  201. CEFUROXIME SODIUM [Concomitant]
     Active Substance: CEFUROXIME SODIUM

REACTIONS (23)
  - Pyrexia [Recovered/Resolved]
  - Hypokalaemia [Recovered/Resolved]
  - Hypoproteinaemia [Recovered/Resolved]
  - Lymphocyte count decreased [Not Recovered/Not Resolved]
  - Blood glucose increased [Recovered/Resolved]
  - Neutrophil count decreased [Recovering/Resolving]
  - Aspartate aminotransferase increased [Recovered/Resolved]
  - Platelet count decreased [Recovered/Resolved]
  - Alanine aminotransferase increased [Recovered/Resolved]
  - Blood alkaline phosphatase increased [Recovering/Resolving]
  - Anaemia [Recovering/Resolving]
  - Myelosuppression [Recovered/Resolved]
  - Pyrexia [Recovered/Resolved]
  - Sinus tachycardia [Recovered/Resolved]
  - Hypophosphataemia [Recovered/Resolved]
  - Hypocalcaemia [Recovered/Resolved]
  - Hypomagnesaemia [Recovered/Resolved]
  - Neutrophil count decreased [Recovered/Resolved]
  - Anaemia [Not Recovered/Not Resolved]
  - Blood albumin decreased [Recovered/Resolved]
  - Thrombocytopenia [Recovered/Resolved]
  - Cholangitis [Not Recovered/Not Resolved]
  - White blood cell count decreased [Recovered/Resolved]

NARRATIVE: CASE EVENT DATE: 20230825
